FAERS Safety Report 8852993 (Version 1)
Quarter: 2012Q4

REPORT INFORMATION
  Report Type: 
  Country: US (occurrence: US)
  Receive Date: 20121022
  Receipt Date: 20121022
  Transmission Date: 20130627
  Serious: Yes (Other)
  Sender: FDA-Public Use
  Company Number: US-BAYER-2012-106966

PATIENT
  Age: 46 Year

DRUGS (2)
  1. BAYER ADVANCED ASPIRIN EXTRA STRENGTH [Suspect]
     Indication: ANTICOAGULANT THERAPY
  2. ACETYLSALICYLIC ACID({=100 MG) [Suspect]
     Indication: ANTICOAGULANT THERAPY

REACTIONS (1)
  - Asthma [None]
